FAERS Safety Report 5376766-3 (Version None)
Quarter: 2007Q2

REPORT INFORMATION
  Report Type: 
  Country: None (occurrence: None)
  Receive Date: 20070629
  Receipt Date: 20070614
  Transmission Date: 20071010
  Serious: Yes (Life-Threatening, Hospitalization, Disabling)
  Sender: FDA-Public Use
  Company Number: SP01272

PATIENT
  Age: 45 Year
  Sex: Female
  Weight: 58.9676 kg

DRUGS (5)
  1. OSMOPREP [Suspect]
     Indication: COLONOSCOPY
     Dosage: UNK, ORAL
     Route: 048
     Dates: start: 20070523, end: 20070524
  2. URSODIOL [Concomitant]
  3. PRILOSEC [Concomitant]
  4. ALPRAZOLAM [Concomitant]
  5. SERTRALINE [Concomitant]

REACTIONS (1)
  - RENAL FAILURE ACUTE [None]
